FAERS Safety Report 4898935-9 (Version None)
Quarter: 2006Q1

REPORT INFORMATION
  Report Type: 
  Country: None (occurrence: None)
  Receive Date: 20060127
  Receipt Date: 20060119
  Transmission Date: 20060701
  Serious: Yes (Other)
  Sender: FDA-Public Use
  Company Number: 2006010934

PATIENT
  Sex: Female

DRUGS (8)
  1. NEURONTIN [Suspect]
     Indication: BACK PAIN
     Dosage: 900 MG (300 MG, 3 IN 1 D), ORAL
     Route: 048
  2. VERAPAMIL [Concomitant]
  3. TRAMADOL (TRAMADOL) [Concomitant]
  4. BACLOFEN [Concomitant]
  5. ZOLOFT [Concomitant]
  6. LOVASTATIN [Concomitant]
  7. ORAL CONTRACEPTIVE NOS (ORAL CONTRACEPTIVE NOS) [Concomitant]
  8. ADDERALL 10 [Concomitant]

REACTIONS (1)
  - INADEQUATE ANALGESIA [None]
